FAERS Safety Report 6615864-0 (Version None)
Quarter: 2010Q1

REPORT INFORMATION
  Report Type: 
  Country: None (occurrence: None)
  Receive Date: 20100226
  Receipt Date: 20100217
  Transmission Date: 20100710
  Serious: Yes (Death)
  Sender: FDA-Public Use
  Company Number: URSO-2009-154

PATIENT
  Age: 77 Year
  Sex: Male

DRUGS (3)
  1. URSODIOL [Suspect]
     Indication: HEPATITIS C
     Dosage: 300MG; 600MG
     Route: 048
     Dates: start: 20050531, end: 20090223
  2. URSODIOL [Suspect]
     Indication: HEPATITIS C
     Dosage: 300MG; 600MG
     Route: 048
     Dates: start: 20090224, end: 20090803
  3. NEO-MINOPHAGEN C [Concomitant]
     Route: 042

REACTIONS (2)
  - HEPATIC NEOPLASM MALIGNANT [None]
  - MALIGNANT NEOPLASM PROGRESSION [None]
